FAERS Safety Report 15514874 (Version 1)
Quarter: 2018Q4

REPORT INFORMATION
  Report Type: Spontaneous
  Country: FR (occurrence: FR)
  Receive Date: 20181017
  Receipt Date: 20181017
  Transmission Date: 20190205
  Serious: Yes (Other)
  Sender: FDA-Public Use
  Company Number: FR-TEVA-2018-FR-964872

PATIENT
  Age: 62 Year
  Sex: Male

DRUGS (3)
  1. AMOXICILLINE [Suspect]
     Active Substance: AMOXICILLIN
     Indication: INFECTION
     Dosage: 14 GRAM DAILY;
     Route: 042
     Dates: start: 20180531, end: 20180607
  2. AMOXICILLINE [Suspect]
     Active Substance: AMOXICILLIN
     Indication: INFECTION
     Dosage: 6 GRAM DAILY;
     Route: 048
     Dates: start: 20180608, end: 20180718
  3. RIFAMPICINE [Suspect]
     Active Substance: RIFAMPIN
     Indication: INFECTION
     Dosage: 900 MILLIGRAM DAILY;
     Route: 048
     Dates: start: 20180608, end: 20180716

REACTIONS (2)
  - Agranulocytosis [Recovered/Resolved]
  - Neutropenia [Recovered/Resolved]

NARRATIVE: CASE EVENT DATE: 20180626
